FAERS Safety Report 18542059 (Version 1)
Quarter: 2020Q4

REPORT INFORMATION
  Report Type: Report from Study
  Country: CA (occurrence: CA)
  Receive Date: 20201124
  Receipt Date: 20201124
  Transmission Date: 20210114
  Serious: Yes (Other)
  Sender: FDA-Public Use
  Company Number: CA-TAKEDA-2020TUS048840

PATIENT
  Age: 42 Year
  Sex: Male

DRUGS (3)
  1. HUMAN NORMAL IMMUNOGLOBULIN; LIQUID 20 [Suspect]
     Active Substance: HUMAN IMMUNOGLOBULIN G
     Indication: PRIMARY IMMUNODEFICIENCY SYNDROME
     Dosage: 10 GRAM, 1/WEEK
     Route: 065
     Dates: start: 20190228
  2. COLISTIN [Concomitant]
     Active Substance: COLISTIN
     Indication: PULMONARY FIBROSIS
     Dosage: UNK
     Dates: start: 20201109
  3. COLISTIN [Concomitant]
     Active Substance: COLISTIN
     Indication: INFECTION

REACTIONS (2)
  - Infection [Unknown]
  - Pulmonary fibrosis [Unknown]
